FAERS Safety Report 8560533-3 (Version None)
Quarter: 2012Q3

REPORT INFORMATION
  Report Type: 
  Country: None (occurrence: None)
  Receive Date: 20120802
  Receipt Date: 20110523
  Transmission Date: 20120928
  Serious: Yes (Other)
  Sender: FDA-Public Use
  Company Number: US-BAYER-200936232NA

PATIENT
  Age: 49 Year
  Sex: Male
  Weight: 77.1 kg

DRUGS (57)
  1. COUMADIN [Concomitant]
  2. RENAGEL [Concomitant]
     Dosage: DOSE: 800-1200MG
  3. ARANESP [Concomitant]
  4. LYRICA [Concomitant]
  5. NORVASC [Concomitant]
     Route: 048
  6. LAMISIL [Concomitant]
  7. PERCOCET [Concomitant]
  8. GENTAMICIN [Concomitant]
  9. OMNISCAN [Suspect]
  10. MULTIHANCE [Suspect]
     Indication: PRODUCT USED FOR UNKNOWN INDICATION
  11. PROCARDIA XL [Concomitant]
  12. FERROUS SULFATE TAB [Concomitant]
     Dates: start: 20060812
  13. SODIUM BICARBONATE [Concomitant]
  14. ACETAMINOPHEN [Concomitant]
  15. MAGNEVIST [Suspect]
     Indication: NUCLEAR MAGNETIC RESONANCE IMAGING
     Route: 042
     Dates: start: 20060519, end: 20060519
  16. MAGNEVIST [Suspect]
     Indication: NUCLEAR MAGNETIC RESONANCE IMAGING BRAIN
     Dosage: 15 ML, UNK
     Dates: start: 20061013, end: 20061013
  17. OMNISCAN [Suspect]
     Indication: FISTULOGRAM
     Dosage: 50 ML OMNISCAN+CO2
     Route: 042
     Dates: start: 20060804, end: 20060804
  18. VENOFER [Concomitant]
     Route: 042
     Dates: start: 20061016
  19. COREG [Concomitant]
  20. ACTOS [Concomitant]
  21. PRINIVIL [Concomitant]
  22. SYNTHROID [Concomitant]
  23. AMITRIPTLINE HYDROCHLORIDE TAB [Concomitant]
  24. NATEGLINIDE [Concomitant]
  25. PENTOXIFYLLINE [Concomitant]
  26. PHOSLO [Concomitant]
  27. GADOLINIUM IN UNSPECIFIED DRUG [Suspect]
     Dates: start: 20040519, end: 20040519
  28. OMNISCAN [Suspect]
     Indication: NUCLEAR MAGNETIC RESONANCE IMAGING
     Dosage: 20 ML, ONCE
     Route: 042
     Dates: start: 20060805, end: 20060805
  29. PROHANCE [Suspect]
     Indication: COMPUTERISED TOMOGRAM HEAD
     Dates: start: 20040519, end: 20040519
  30. PROCRIT [Concomitant]
  31. EPOGEN [Concomitant]
  32. NEXIUM [Concomitant]
  33. ELAVIL [Concomitant]
  34. OPTIMARK [Suspect]
     Indication: PRODUCT USED FOR UNKNOWN INDICATION
  35. LIPITOR [Concomitant]
  36. LANTUS [Concomitant]
  37. TRENTAL [Concomitant]
  38. BENADRYL [Concomitant]
  39. AVELOX [Concomitant]
  40. PLETAL [Concomitant]
  41. TAMBOCOR [Concomitant]
  42. ATENOLOL [Concomitant]
  43. ZYVOX [Concomitant]
  44. LOPID [Concomitant]
  45. NEPHROCAPS [Concomitant]
  46. BACTRIM DS [Concomitant]
  47. RESTORIL [Concomitant]
  48. MAGNEVIST [Suspect]
     Dosage: 20 ML, UNK
     Route: 042
     Dates: start: 20061017, end: 20061017
  49. CLONIDINE [Concomitant]
  50. STARLIX [Concomitant]
  51. ACCUPRIL [Concomitant]
  52. VANCOMYCIN [Concomitant]
  53. LASIX [Concomitant]
  54. POTASSIUM CHLORIDE [Concomitant]
  55. GLUCOTROL [Concomitant]
  56. RENAGEL [Concomitant]
  57. NICOTINE [Concomitant]

REACTIONS (24)
  - EXTREMITY CONTRACTURE [None]
  - MUSCULOSKELETAL STIFFNESS [None]
  - SKIN INDURATION [None]
  - PAIN [None]
  - QUADRIPARESIS [None]
  - SKIN TIGHTNESS [None]
  - OEDEMA [None]
  - ERYTHEMA [None]
  - JOINT CONTRACTURE [None]
  - SKIN HYPERTROPHY [None]
  - MUSCULAR WEAKNESS [None]
  - JOINT RANGE OF MOTION DECREASED [None]
  - JOINT STIFFNESS [None]
  - MYOSCLEROSIS [None]
  - SKIN LESION [None]
  - RASH PRURITIC [None]
  - JOINT SWELLING [None]
  - DEPRESSION [None]
  - MOBILITY DECREASED [None]
  - SKIN PLAQUE [None]
  - MUSCLE TIGHTNESS [None]
  - NEPHROGENIC SYSTEMIC FIBROSIS [None]
  - GENERAL PHYSICAL HEALTH DETERIORATION [None]
  - OEDEMA PERIPHERAL [None]
